FAERS Safety Report 12163028 (Version 1)
Quarter: 2016Q1

REPORT INFORMATION
  Report Type: Spontaneous
  Country: US (occurrence: US)
  Receive Date: 20160309
  Receipt Date: 20160309
  Transmission Date: 20160526
  Serious: No
  Sender: FDA-Public Use
  Company Number: US-ROCHE-1542585

PATIENT
  Age: 54 Year
  Sex: Male
  Weight: 117.13 kg

DRUGS (2)
  1. XOLAIR [Suspect]
     Active Substance: OMALIZUMAB
     Indication: ASTHMA
     Route: 058
     Dates: start: 20140719, end: 20141218
  2. XOLAIR [Suspect]
     Active Substance: OMALIZUMAB
     Dosage: 3 INJECTION. LAST INJECTION DEC/2014
     Route: 058
     Dates: start: 20140724, end: 20141231

REACTIONS (2)
  - Muscle spasms [Recovered/Resolved]
  - Drug ineffective [Unknown]

NARRATIVE: CASE EVENT DATE: 20141019
